FAERS Safety Report 22248209 (Version 2)
Quarter: 2023Q2

REPORT INFORMATION
  Report Type: Report from Study
  Country: CA (occurrence: CA)
  Receive Date: 20230425
  Receipt Date: 20230428
  Transmission Date: 20230722
  Serious: Yes (Other)
  Sender: FDA-Public Use
  Company Number: CA-JNJFOC-20230450960

PATIENT
  Age: 13 Year
  Sex: Male

DRUGS (1)
  1. REMICADE [Suspect]
     Active Substance: INFLIXIMAB
     Indication: Product used for unknown indication
     Dosage: ON 19/APR/2023 PATIENT RECEIVED INFUSION.
     Route: 042

REACTIONS (1)
  - Abdominal operation [Recovered/Resolved]

NARRATIVE: CASE EVENT DATE: 20230406
